FAERS Safety Report 20492790 (Version 2)
Quarter: 2022Q2

REPORT INFORMATION
  Report Type: Report from Study
  Country: FR (occurrence: None)
  Receive Date: 20220219
  Receipt Date: 20220429
  Transmission Date: 20220720
  Serious: Yes (Hospitalization)
  Sender: FDA-Public Use
  Company Number: FR-ROCHE-3021504

PATIENT
  Age: 59 Year
  Sex: Male
  Weight: 72 kg

DRUGS (6)
  1. TRASTUZUMAB [Suspect]
     Active Substance: TRASTUZUMAB
     Indication: HER2 positive gastric cancer
     Dosage: LAST ADMINISTRATION BEFORE SAE OCCURRED: 17/JAN/2022
     Route: 042
     Dates: start: 20210215
  2. PERTUZUMAB [Suspect]
     Active Substance: PERTUZUMAB
     Indication: HER2 positive gastric cancer
     Dosage: LAST ADMINISTRATION BEFORE SAE OCCURRED: 17/JAN/2022
     Route: 042
     Dates: start: 20210215
  3. FLUOROURACIL [Suspect]
     Active Substance: FLUOROURACIL
     Indication: HER2 positive gastric cancer
     Dosage: LAST ADMINISTRATION BEFORE SAE OCCURRED: 26/JUL/2021?D1-5 IN 3 WEEKLY SCHEDULE AT RATE OF 800 MG/M2.
     Route: 042
     Dates: start: 20210215
  4. DOCETAXEL [Suspect]
     Active Substance: DOCETAXEL
     Indication: HER2 positive gastric cancer
     Dosage: LAST ADMINISTRATION BEFORE SAE OCCURRED: 14/JUN/2021
     Route: 042
     Dates: start: 20210215
  5. OXALIPLATIN [Suspect]
     Active Substance: OXALIPLATIN
     Indication: HER2 positive gastric cancer
     Dosage: LAST ADMINISTRATION BEFORE SAE OCCURRED: 26/JUL/2021?130 MG/M2 TWICE DAILY ON D1-15 IN 3 WEEKLY SCHE
     Route: 042
     Dates: start: 20210215
  6. LEUCOVORIN [Suspect]
     Active Substance: LEUCOVORIN
     Indication: HER2 positive gastric cancer
     Dosage: LAST ADMINISTRATION BEFORE SAE OCCURRED: 26/JUL/2021
     Route: 042
     Dates: start: 20210215

REACTIONS (1)
  - Small intestinal obstruction [Recovering/Resolving]

NARRATIVE: CASE EVENT DATE: 20220203
